FAERS Safety Report 25017743 (Version 1)
Quarter: 2025Q1

REPORT INFORMATION
  Report Type: Spontaneous
  Country: CA (occurrence: None)
  Receive Date: 20250226
  Receipt Date: 20250226
  Transmission Date: 20250408
  Serious: No
  Sender: FDA-CTU
  Company Number: None

PATIENT
  Age: 78 Year
  Sex: Female
  Weight: 72.57 kg

DRUGS (15)
  1. ZORYVE [Suspect]
     Active Substance: ROFLUMILAST
     Indication: Application site rash
     Route: 050
     Dates: start: 20241111, end: 20241220
  2. ZORYVE [Suspect]
     Active Substance: ROFLUMILAST
     Indication: Rash macular
  3. ZORYVE [Suspect]
     Active Substance: ROFLUMILAST
     Indication: Rash papular
  4. ZORYVE [Suspect]
     Active Substance: ROFLUMILAST
     Indication: Rash
  5. ZORYVE [Suspect]
     Active Substance: ROFLUMILAST
     Indication: Rash macular
  6. LUMIGAN [Concomitant]
     Active Substance: BIMATOPROST
  7. VITAMINS [Concomitant]
     Active Substance: VITAMINS
  8. IRON [Concomitant]
     Active Substance: IRON
  9. Calcium K2 [Concomitant]
  10. FOLIC ACID [Concomitant]
     Active Substance: FOLIC ACID
  11. Lentein [Concomitant]
  12. OMEGA 3 [Concomitant]
     Active Substance: CAPSAICIN
  13. GLUCOSAMINE [Concomitant]
     Active Substance: GLUCOSAMINE
  14. B12 [Concomitant]
  15. VITAMIN D3 [Concomitant]
     Active Substance: CHOLECALCIFEROL

REACTIONS (4)
  - Adverse drug reaction [None]
  - Rosacea [None]
  - Treatment noncompliance [None]
  - Self-medication [None]

NARRATIVE: CASE EVENT DATE: 20241111
